FAERS Safety Report 6343055-X (Version None)
Quarter: 2009Q3

REPORT INFORMATION
  Report Type: 
  Country: None (occurrence: None)
  Receive Date: 20090903
  Receipt Date: 20090812
  Transmission Date: 20100115
  Serious: Yes (Hospitalization)
  Sender: FDA-Public Use
  Company Number: 2009-198940-NL

PATIENT
  Age: 67 Year
  Sex: Female

DRUGS (8)
  1. REMERON [Suspect]
     Indication: ANXIETY
     Dosage: 30 MG;QD;PO
     Route: 048
     Dates: start: 20090108, end: 20090407
  2. RMIIFON (ISONIAZID) (150 MG) [Suspect]
     Indication: BONE TUBERCULOSIS
     Dosage: 900 MG;TIW;PO
     Route: 048
     Dates: start: 20090401, end: 20090416
  3. ETHAMBUTOL LABATEC (ETHAMBUTOL DIHYDROCHLORIDE) (400 MG) [Suspect]
     Indication: BONE TUBERCULOSIS
     Dosage: 1200 MG;TIW;PO
     Route: 048
     Dates: start: 20090401
  4. RIFAMPICIN [Suspect]
     Indication: BONE TUBERCULOSIS
     Dosage: 600 MG;TIW;PO
     Route: 048
     Dates: start: 20090401
  5. GABAPENTIN [Suspect]
     Indication: BACK PAIN
     Dosage: 300 MG;TIW;PO
     Route: 048
  6. PYRAZINAMIDE [Suspect]
     Indication: BONE TUBERCULOSIS
     Dosage: 2000 MG;TIW;PO
     Route: 048
     Dates: start: 20090401
  7. HYDROMORPHONE HCL [Suspect]
     Indication: DRUG USE FOR UNKNOWN INDICATION
     Dates: end: 20090407
  8. ALPRAZOLAM [Suspect]
     Dates: end: 20090407

REACTIONS (5)
  - CONFUSIONAL STATE [None]
  - DELIRIUM [None]
  - DRUG INTERACTION [None]
  - INTERVERTEBRAL DISCITIS [None]
  - PSYCHOMOTOR HYPERACTIVITY [None]
